FAERS Safety Report 11082075 (Version 1)
Quarter: 2015Q2

REPORT INFORMATION
  Report Type: Spontaneous
  Country: ES (occurrence: ES)
  Receive Date: 20150501
  Receipt Date: 20150501
  Transmission Date: 20150821
  Serious: Yes (Hospitalization, Other)
  Sender: FDA-Public Use
  Company Number: PHHY2015ES049525

PATIENT
  Age: 47 Year
  Sex: Male

DRUGS (1)
  1. ENOXAPARIN [Suspect]
     Active Substance: ENOXAPARIN
     Indication: SURGERY
     Dosage: 1 MG/KG, BID
     Route: 065

REACTIONS (12)
  - Jugular vein distension [Recovering/Resolving]
  - Hypotension [Recovering/Resolving]
  - Central venous pressure increased [Recovering/Resolving]
  - Hyperhidrosis [Recovering/Resolving]
  - Anuria [Recovering/Resolving]
  - Blood pressure systolic inspiratory decreased [Recovering/Resolving]
  - Cardiac tamponade [Recovering/Resolving]
  - Chest pain [Recovering/Resolving]
  - Tachypnoea [Recovering/Resolving]
  - Dyspnoea [Recovering/Resolving]
  - Hypoperfusion [Recovering/Resolving]
  - Tachycardia [Recovering/Resolving]
